FAERS Safety Report 9192018 (Version 1)
Quarter: 2013Q1

REPORT INFORMATION
  Report Type: Spontaneous
  Country: US (occurrence: None)
  Receive Date: 20130325
  Receipt Date: 20130325
  Transmission Date: 20140127
  Serious: Yes (Death, Other)
  Sender: FDA-Public Use
  Company Number: SYM-2013-01926

PATIENT
  Sex: 0

DRUGS (4)
  1. FLUOROURACIL [Suspect]
     Indication: PANCREATIC CARCINOMA
  2. OXALIPLATIN [Suspect]
     Indication: PANCREATIC CARCINOMA
  3. LEUCOVORIN [Suspect]
     Indication: PANCREATIC CARCINOMA
  4. IRINOTECAN [Suspect]
     Indication: PANCREATIC CARCINOMA

REACTIONS (2)
  - Febrile neutropenia [None]
  - Bacteraemia [None]
